FAERS Safety Report 23530149 (Version 2)
Quarter: 2024Q2

REPORT INFORMATION
  Report Type: Report from Study
  Country: US (occurrence: US)
  Receive Date: 20240216
  Receipt Date: 20240418
  Transmission Date: 20240716
  Serious: Yes (Life-Threatening, Hospitalization, Other)
  Sender: FDA-Public Use
  Company Number: US-ARGENX-2024-ARGX-US001008

PATIENT

DRUGS (1)
  1. VYVGART [Suspect]
     Active Substance: EFGARTIGIMOD ALFA-FCAB
     Indication: Myasthenia gravis
     Dosage: UNK
     Route: 042

REACTIONS (7)
  - Septic shock [Unknown]
  - Hepatocellular carcinoma [Unknown]
  - Cardiac failure congestive [Unknown]
  - Skin laceration [Unknown]
  - Arthritis [Unknown]
  - Drooling [Unknown]
  - Dropped head syndrome [Unknown]
